FAERS Safety Report 9298819 (Version 1)
Quarter: 2013Q2

REPORT INFORMATION
  Report Type: Spontaneous
  Country: US (occurrence: US)
  Receive Date: 20130520
  Receipt Date: 20130520
  Transmission Date: 20140414
  Serious: No
  Sender: FDA-Public Use
  Company Number: US-009507513-1305USA008549

PATIENT
  Sex: 0

DRUGS (5)
  1. JANUVIA [Suspect]
     Dosage: UNK
     Route: 048
     Dates: start: 20130111
  2. LOSARTAN SANDOZ [Suspect]
  3. GLIZIDE [Suspect]
  4. TOVIAZ [Suspect]
  5. TRIMETHOPRIM [Suspect]

REACTIONS (2)
  - Medication residue present [Unknown]
  - No adverse event [Unknown]
